FAERS Safety Report 15192601 (Version 1)
Quarter: 2018Q3

REPORT INFORMATION
  Report Type: Spontaneous
  Country: US (occurrence: US)
  Receive Date: 20180725
  Receipt Date: 20180725
  Transmission Date: 20181010
  Serious: No
  Sender: FDA-Public Use
  Company Number: US-009507513-1106USA00857

PATIENT
  Age: 28 Year
  Sex: Female

DRUGS (7)
  1. EMTRICITABINE (+) TENOFOVIR DISOPROXIL FUMARATE [Suspect]
     Active Substance: EMTRICITABINE\TENOFOVIR DISOPROXIL
     Dosage: COURSE NUMBER 1, TOTAL DAILY DOSE 1
     Route: 048
  2. ZIDOVUDINE. [Suspect]
     Active Substance: ZIDOVUDINE
  3. ISENTRESS [Suspect]
     Active Substance: RALTEGRAVIR POTASSIUM
     Dosage: COURSE NUMBER 1, TOTAL DAILY DOSE 400
     Route: 048
  4. DARUNAVIR [Suspect]
     Active Substance: DARUNAVIR
     Dosage: COURSE NUMBER 1, TOTAL DAILY DOSE 1200
     Route: 048
  5. ABACAVIR SULFATE (+) LAMIVUDINE [Suspect]
     Active Substance: ABACAVIR SULFATE\LAMIVUDINE
     Dosage: COURSE NUMBER 1, TOTAL DAILY DOSE 1
     Route: 048
  6. RITONAVIR. [Suspect]
     Active Substance: RITONAVIR
  7. ETRAVIRINE [Suspect]
     Active Substance: ETRAVIRINE
     Dosage: COURSE NUMBER 1, TOTAL DAILY DOSE 200
     Route: 048

REACTIONS (2)
  - Premature delivery [Recovered/Resolved]
  - Maternal exposure during pregnancy [Recovered/Resolved]
